FAERS Safety Report 20861166 (Version 1)
Quarter: 2022Q2

REPORT INFORMATION
  Report Type: Spontaneous
  Country: US (occurrence: US)
  Receive Date: 20220523
  Receipt Date: 20220523
  Transmission Date: 20220721
  Serious: No
  Sender: FDA-Public Use
  Company Number: US-PFIZER INC-202101501074

PATIENT
  Age: 7 Year
  Sex: Female

DRUGS (1)
  1. EUCRISA [Suspect]
     Active Substance: CRISABOROLE
     Indication: Drug eruption
     Dosage: APPLY TO THE AFFECTED AREAS OF THE EXTREMITIES TWICE DAILY
     Route: 061

REACTIONS (2)
  - Rash [Unknown]
  - Off label use [Unknown]
